FAERS Safety Report 7806364-0 (Version None)
Quarter: 2011Q4

REPORT INFORMATION
  Report Type: 
  Country: None (occurrence: None)
  Receive Date: 20111011
  Receipt Date: 20110928
  Transmission Date: 20120403
  Serious: Yes (Other)
  Sender: FDA-Public Use
  Company Number: ES-ELI_LILLY_AND_COMPANY-ES201109001853

PATIENT
  Age: 7 Year
  Sex: Male
  Weight: 21 kg

DRUGS (3)
  1. ARTANE [Concomitant]
     Indication: DYSKINESIA
     Dosage: 1 MG, TID
     Route: 048
     Dates: start: 20110301
  2. THIAMINE HYDROCHLORIDE [Concomitant]
     Indication: HYPOVITAMINOSIS
     Dosage: 20 MG, BID
     Route: 048
  3. STRATTERA [Suspect]
     Indication: ATTENTION DEFICIT/HYPERACTIVITY DISORDER
     Dosage: 18 MG, QD
     Route: 048
     Dates: start: 20110903

REACTIONS (4)
  - HAEMATEMESIS [None]
  - MALAISE [None]
  - NAUSEA [None]
  - VOMITING [None]
